FAERS Safety Report 9880414 (Version 1)
Quarter: 2014Q1

REPORT INFORMATION
  Report Type: Spontaneous
  Country: US (occurrence: None)
  Receive Date: 20140204
  Receipt Date: 20140204
  Transmission Date: 20141002
  Serious: Yes (Death)
  Sender: FDA-Public Use
  Company Number: IMP_07075_2014

PATIENT
  Age: 42 Year
  Sex: Female

DRUGS (1)
  1. OXYMORPHONE [Suspect]
     Route: 048

REACTIONS (2)
  - Completed suicide [None]
  - Exposure via ingestion [None]
